FAERS Safety Report 11104086 (Version 1)
Quarter: 2015Q2

REPORT INFORMATION
  Report Type: Spontaneous
  Country: US (occurrence: None)
  Receive Date: 20150508
  Receipt Date: 20150508
  Transmission Date: 20150821
  Serious: No
  Sender: FDA-Public Use
  Company Number: None

PATIENT
  Age: 92 Year
  Sex: Female
  Weight: 38.1 kg

DRUGS (4)
  1. CALCIUM [Concomitant]
     Active Substance: CALCIUM
  2. AMOXICILLIAN CHEW TAB 250 MG DID NOT KEEP BOTTLE [Suspect]
     Active Substance: AMOXICILLIN
     Indication: SINUSITIS
     Dosage: 30 THREE TIMES DAILY  TAKEN BY MOUTH
     Route: 048
     Dates: start: 20150403, end: 20150403
  3. D3 [Concomitant]
     Active Substance: 25-HYDROXYCHOLECALCIFEROL, 5-TRANS-
  4. AZO [Concomitant]
     Active Substance: PHENAZOPYRIDINE HYDROCHLORIDE

REACTIONS (3)
  - Glossodynia [None]
  - Throat irritation [None]
  - Dyspepsia [None]

NARRATIVE: CASE EVENT DATE: 20150325
